FAERS Safety Report 18372867 (Version 2)
Quarter: 2020Q4

REPORT INFORMATION
  Report Type: Report from Study
  Country: None (occurrence: CH)
  Receive Date: 20201012
  Receipt Date: 20201029
  Transmission Date: 20210114
  Serious: Yes (Death, Hospitalization)
  Sender: FDA-Public Use
  Company Number: CH-ABBVIE-20K-151-3597786-00

PATIENT
  Sex: Male

DRUGS (2)
  1. DUODOPA [Suspect]
     Active Substance: CARBIDOPA\LEVODOPA
     Dosage: MD: 8 ML CRD: 4,7 ML/H CRN: 2,5 ML/H ED: 1,5 ML 24TH THERAPY
     Route: 050
     Dates: start: 20190627
  2. DUODOPA [Suspect]
     Active Substance: CARBIDOPA\LEVODOPA
     Indication: PARKINSON^S DISEASE
     Dosage: 1 CASSETTE PER DAY
     Route: 050
     Dates: start: 20190624, end: 20190627

REACTIONS (2)
  - Ileus [Fatal]
  - Hospitalisation [Unknown]
